FAERS Safety Report 7944102-1 (Version None)
Quarter: 2011Q4

REPORT INFORMATION
  Report Type: 
  Country: None (occurrence: None)
  Receive Date: 20111128
  Receipt Date: 20111116
  Transmission Date: 20120403
  Serious: Yes (Other)
  Sender: FDA-Public Use
  Company Number: DE-ASTRAZENECA-2011SE69607

PATIENT
  Sex: Female

DRUGS (5)
  1. CITALOPRAM HYDROBROMIDE [Concomitant]
     Indication: DEPRESSION
  2. IRESSA [Suspect]
     Indication: NON-SMALL CELL LUNG CANCER
     Route: 048
     Dates: start: 20110301
  3. NOVALGIN [Concomitant]
     Indication: PAIN
  4. ESOMEPRAZOLE [Concomitant]
  5. PALLADONE [Concomitant]
     Indication: PAIN

REACTIONS (2)
  - IMPAIRED HEALING [None]
  - PARONYCHIA [None]
